FAERS Safety Report 11127257 (Version 1)
Quarter: 2015Q2

REPORT INFORMATION
  Report Type: Spontaneous
  Country: US (occurrence: None)
  Receive Date: 20150520
  Receipt Date: 20150520
  Transmission Date: 20150821
  Serious: Yes (Life-Threatening, Hospitalization)
  Sender: FDA-Public Use
  Company Number: None

PATIENT
  Age: 72 Year
  Sex: Female
  Weight: 91.63 kg

DRUGS (11)
  1. BLOOD PRESSURE [Concomitant]
  2. MULTI VITAMIN [Concomitant]
     Active Substance: VITAMINS
  3. HYDNO EYES [Concomitant]
  4. DIFLUCAN [Suspect]
     Active Substance: FLUCONAZOLE
     Indication: URINARY TRACT INFECTION
     Route: 048
     Dates: start: 20150407, end: 20150408
  5. SYNTHROID [Concomitant]
     Active Substance: LEVOTHYROXINE SODIUM
  6. URIBEL [Concomitant]
     Active Substance: HYOSCYAMINE SULFATE\METHENAMINE\METHYLENE BLUE\PHENYL SALICYLATE\SODIUM PHOSPHATE, MONOBASIC, MONOHYDRATE
  7. MULTI VITAMIN-CENTRUM SILVER [Concomitant]
  8. ACIDHEX [Concomitant]
  9. THYROID [Concomitant]
     Active Substance: LEVOTHYROXINE\LIOTHYRONINE
  10. VITAMINS FOR DRY EYES [Concomitant]
  11. HYDROCHLOROTHIAZIDE. [Concomitant]
     Active Substance: HYDROCHLOROTHIAZIDE

REACTIONS (10)
  - Malaise [None]
  - Hypertension [None]
  - Chest pain [None]
  - Dizziness [None]
  - Nausea [None]
  - Asthenia [None]
  - Headache [None]
  - Decreased appetite [None]
  - Heart rate irregular [None]
  - Fatigue [None]

NARRATIVE: CASE EVENT DATE: 20150408
